FAERS Safety Report 14093364 (Version 1)
Quarter: 2017Q4

REPORT INFORMATION
  Report Type: Report from Study
  Country: IL (occurrence: IL)
  Receive Date: 20171016
  Receipt Date: 20171016
  Transmission Date: 20180321
  Serious: Yes (Hospitalization, Other)
  Sender: FDA-Public Use
  Company Number: IL-IPSEN BIOPHARMACEUTICALS, INC.-2017-02787

PATIENT
  Age: 75 Year
  Sex: Female

DRUGS (1)
  1. SOMATULINE AUTOGEL 120MG [Suspect]
     Active Substance: LANREOTIDE ACETATE
     Indication: NEUROENDOCRINE TUMOUR
     Dosage: 120 MG
     Route: 065
     Dates: start: 201212, end: 20170606

REACTIONS (2)
  - Cholelithiasis [Unknown]
  - Large intestine polyp [Unknown]
